FAERS Safety Report 6897844-3 (Version None)
Quarter: 2010Q3

REPORT INFORMATION
  Report Type: 
  Country: None (occurrence: None)
  Receive Date: 20100802
  Receipt Date: 20070718
  Transmission Date: 20110219
  Serious: No
  Sender: FDA-Public Use
  Company Number: US-PFIZER INC-2007060081

PATIENT
  Sex: Male
  Weight: 86.4 kg

DRUGS (3)
  1. LYRICA [Suspect]
     Indication: PAIN IN EXTREMITY
     Dates: start: 20070601
  2. LYRICA [Suspect]
     Indication: SPINAL COLUMN STENOSIS
  3. DARVOCET [Concomitant]
     Indication: PAIN IN EXTREMITY

REACTIONS (2)
  - PAIN IN EXTREMITY [None]
  - VISUAL IMPAIRMENT [None]
